FAERS Safety Report 8534448-0 (Version None)
Quarter: 2012Q3

REPORT INFORMATION
  Report Type: 
  Country: None (occurrence: None)
  Receive Date: 20120724
  Receipt Date: 20120710
  Transmission Date: 20120928
  Serious: No
  Sender: FDA-Public Use
  Company Number: US-ASTRAZENECA-2012SE47617

PATIENT
  Sex: Female

DRUGS (3)
  1. SEROQUEL XR [Suspect]
     Route: 048
     Dates: start: 20111101
  2. ZOLOFT [Suspect]
     Route: 048
  3. AMBIEN [Suspect]
     Route: 048

REACTIONS (3)
  - NERVOUS SYSTEM DISORDER [None]
  - MALAISE [None]
  - ADVERSE EVENT [None]
